FAERS Safety Report 8717323 (Version 2)
Quarter: 2013Q4

REPORT INFORMATION
  Report Type: Report from Study
  Country: NL (occurrence: NL)
  Receive Date: 20120810
  Receipt Date: 20131031
  Transmission Date: 20140711
  Serious: Yes (Other)
  Sender: FDA-Public Use
  Company Number: NL-009507513-1208NLD003301

PATIENT
  Sex: 0

DRUGS (9)
  1. ORADEXON ORGANON [Suspect]
     Indication: ACUTE LYMPHOCYTIC LEUKAEMIA
     Dosage: UNK UNK, QD
     Route: 048
  2. VINCRISTINE SULFATE [Concomitant]
     Indication: ACUTE LYMPHOCYTIC LEUKAEMIA
     Dosage: 1 MG, DAY 1, 8 AND 15
     Route: 041
  3. DOXORUBICIN [Concomitant]
     Indication: ACUTE LYMPHOCYTIC LEUKAEMIA
     Dosage: 40 MG/M2, DAY 2-4 (}60 YEAR: 30 MG/M2 PER DAY)
  4. CYTARABINE [Concomitant]
     Indication: ACUTE LYMPHOCYTIC LEUKAEMIA
     Dosage: 200 MG/M2, ON DAY 1
     Route: 041
  5. CYTARABINE [Concomitant]
     Dosage: 200 MG/M2, ON DAY 8
     Route: 041
  6. ETOPOSIDE [Concomitant]
     Indication: ACUTE LYMPHOCYTIC LEUKAEMIA
     Dosage: 120 MG/M2, ON DAY 1
     Route: 041
  7. ETOPOSIDE [Concomitant]
     Dosage: 120 MG/M2, ON DAY 8
     Route: 041
  8. METHOTREXATE [Concomitant]
     Indication: ACUTE LYMPHOCYTIC LEUKAEMIA
     Dosage: 500 MG/M2, ON DAY 4
  9. METHOTREXATE [Concomitant]
     Dosage: 500 MG/M2, ON DAY 11

REACTIONS (1)
  - Hepatic function abnormal [Unknown]
